FAERS Safety Report 7230212-3 (Version None)
Quarter: 2011Q1

REPORT INFORMATION
  Report Type: 
  Country: None (occurrence: None)
  Receive Date: 20110118
  Receipt Date: 20110107
  Transmission Date: 20110831
  Serious: Yes (Other)
  Sender: FDA-Public Use
  Company Number: BR-US-EMD SERONO, INC.-7035357

PATIENT
  Sex: Female

DRUGS (4)
  1. ESTROFEM [Concomitant]
  2. ESTRADIOL [Concomitant]
  3. SAIZEN [Suspect]
     Indication: GROWTH HORMONE DEFICIENCY
     Dates: start: 20100505, end: 20101001
  4. PROGESTERONE [Concomitant]

REACTIONS (1)
  - BASAL CELL CARCINOMA [None]
